FAERS Safety Report 10662109 (Version 1)
Quarter: 2014Q4

REPORT INFORMATION
  Report Type: Spontaneous
  Country: US (occurrence: None)
  Receive Date: 20141216
  Receipt Date: 20141216
  Transmission Date: 20150529
  Serious: Yes (Other)
  Sender: FDA-Public Use
  Company Number: 2014VER00338

PATIENT
  Age: 45 Year
  Sex: Female
  Weight: 58 kg

DRUGS (1)
  1. MYORISAN [Suspect]
     Active Substance: ISOTRETINOIN
     Indication: ROSACEA
     Dosage: 40 MG, 3X/WEEK, ORAL
     Route: 048
     Dates: start: 20140117, end: 20141022

REACTIONS (6)
  - Vitamin D decreased [None]
  - Abdominal pain [None]
  - Uterine leiomyoma [None]
  - Vaginal discharge [None]
  - Vaginal odour [None]
  - Off label use [None]

NARRATIVE: CASE EVENT DATE: 20140117
